FAERS Safety Report 25859812 (Version 1)
Quarter: 2025Q3

REPORT INFORMATION
  Report Type: Spontaneous
  Country: CN (occurrence: CN)
  Receive Date: 20250929
  Receipt Date: 20250929
  Transmission Date: 20251021
  Serious: Yes (Hospitalization)
  Sender: MERCK SHARP & DOHME LLC
  Company Number: CN-009507513-2333790

PATIENT
  Age: 66 Year
  Sex: Male
  Weight: 70 kg

DRUGS (2)
  1. CILASTATIN SODIUM\IMIPENEM [Suspect]
     Active Substance: CILASTATIN SODIUM\IMIPENEM
     Indication: Appendicitis
     Route: 041
     Dates: start: 20250921, end: 20250923
  2. SODIUM CHLORIDE [Concomitant]
     Active Substance: SODIUM CHLORIDE
     Indication: Medication dilution
     Dosage: 0.9%
     Route: 041
     Dates: start: 20250921, end: 20250923

REACTIONS (4)
  - Altered state of consciousness [Unknown]
  - Depressed level of consciousness [Unknown]
  - Apathy [Unknown]
  - Taciturnity [Unknown]

NARRATIVE: CASE EVENT DATE: 20250923
